FAERS Safety Report 4389260-3 (Version None)
Quarter: 2004Q2

REPORT INFORMATION
  Report Type: 
  Country: None (occurrence: None)
  Receive Date: 20040628
  Receipt Date: 20040614
  Transmission Date: 20050107
  Serious: Yes (Hospitalization)
  Sender: FDA-Public Use
  Company Number: 04P-009-0263911-00

PATIENT
  Age: 49 Year
  Sex: Male
  Weight: 97 kg

DRUGS (1)
  1. HUMIRA [Suspect]
     Indication: RHEUMATOID ARTHRITIS
     Dosage: SUBCUTANEOUS
     Route: 058
     Dates: start: 20030328

REACTIONS (3)
  - MYOGLOBINAEMIA [None]
  - PERITONSILLAR ABSCESS [None]
  - RENAL FAILURE [None]
